FAERS Safety Report 7234013-1 (Version None)
Quarter: 2011Q1

REPORT INFORMATION
  Report Type: 
  Country: None (occurrence: None)
  Receive Date: 20110113
  Receipt Date: 20110113
  Transmission Date: 20110831
  Serious: No
  Sender: FDA-Public Use
  Company Number: None

PATIENT
  Age: 74 Year
  Sex: Male
  Weight: 97 kg

DRUGS (1)
  1. RANOLAZINE [Suspect]
     Indication: ANGINA PECTORIS
     Dosage: 1000 MG BID PO
     Route: 048
     Dates: start: 20100902, end: 20100929

REACTIONS (6)
  - LETHARGY [None]
  - VISION BLURRED [None]
  - DIZZINESS [None]
  - HALLUCINATION [None]
  - CONFUSIONAL STATE [None]
  - DECREASED APPETITE [None]
